FAERS Safety Report 7571570-X (Version None)
Quarter: 2011Q2

REPORT INFORMATION
  Report Type: 
  Country: None (occurrence: None)
  Receive Date: 20110624
  Receipt Date: 20110610
  Transmission Date: 20111010
  Serious: Yes (Other)
  Sender: FDA-Public Use
  Company Number: DE-NICOBRDEV-2011-06179

PATIENT
  Age: 91 Year
  Sex: Female
  Weight: 50 kg

DRUGS (1)
  1. OXYBUTYNIN [Suspect]
     Indication: ACCIDENTAL EXPOSURE
     Dosage: 11.7 MG, (3 PATCHES)
     Route: 062
     Dates: start: 20110401, end: 20110401

REACTIONS (3)
  - DIZZINESS [None]
  - NIGHT SWEATS [None]
  - OVERDOSE [None]
